FAERS Safety Report 7774178-6 (Version None)
Quarter: 2011Q3

REPORT INFORMATION
  Report Type: 
  Country: None (occurrence: None)
  Receive Date: 20110923
  Receipt Date: 20110916
  Transmission Date: 20111222
  Serious: Yes (Other)
  Sender: FDA-Public Use
  Company Number: DK-JNJFOC-20110813047

PATIENT
  Sex: Female

DRUGS (2)
  1. REMICADE [Suspect]
     Route: 042
     Dates: end: 20110316
  2. REMICADE [Suspect]
     Indication: RHEUMATOID ARTHRITIS
     Dosage: WEEK 0, 2, 6 AND 8
     Route: 042
     Dates: start: 20030401

REACTIONS (1)
  - HERPES ZOSTER [None]
